FAERS Safety Report 15703590 (Version 1)
Quarter: 2018Q4

REPORT INFORMATION
  Report Type: Report from Study
  Country: FR (occurrence: FR)
  Receive Date: 20181210
  Receipt Date: 20181210
  Transmission Date: 20190205
  Serious: Yes (Death, Hospitalization)
  Sender: FDA-Public Use
  Company Number: FR-ROCHE-1659676

PATIENT
  Age: 32 Year
  Sex: Male
  Weight: 55 kg

DRUGS (5)
  1. FUNGIZONE [Concomitant]
     Active Substance: AMPHOTERICIN B
     Indication: PROPHYLAXIS
     Route: 048
     Dates: start: 20151110, end: 201511
  2. TOPALGIC (FRANCE) [Concomitant]
     Active Substance: TRAMADOL HYDROCHLORIDE
     Indication: PROPHYLAXIS
     Route: 048
     Dates: start: 20151110
  3. ATEZOLIZUMAB. [Suspect]
     Active Substance: ATEZOLIZUMAB
     Indication: NEOPLASM
     Dosage: MOST RECENT DOSE OF ATEZOLIZUMAB PRIOR TO ONSET OF CENTRAL VENOUS ACCESS DEVICE INFECTION AND CANCER
     Route: 042
     Dates: start: 20151021
  4. BARACLUDE [Concomitant]
     Active Substance: ENTECAVIR
     Indication: CHRONIC HEPATITIS B
     Route: 048
     Dates: start: 20150301
  5. TRAMADOL. [Concomitant]
     Active Substance: TRAMADOL
     Indication: TUMOUR PAIN
     Route: 048
     Dates: start: 20151110

REACTIONS (2)
  - Malignant neoplasm progression [Fatal]
  - Vascular device infection [Recovered/Resolved]

NARRATIVE: CASE EVENT DATE: 20151106
